FAERS Safety Report 23245849 (Version 1)
Quarter: 2023Q4

REPORT INFORMATION
  Report Type: Spontaneous
  Country: TR (occurrence: TR)
  Receive Date: 20231130
  Receipt Date: 20231130
  Transmission Date: 20240109
  Serious: Yes (Hospitalization, Other)
  Sender: FDA-Public Use
  Company Number: TR-BAYER-2023A170208

PATIENT
  Age: 72 Year
  Sex: Male

DRUGS (2)
  1. POLYETHYLENE GLYCOL 3350 [Suspect]
     Active Substance: POLYETHYLENE GLYCOL 3350
     Indication: Colonoscopy
     Dosage: UNK
  2. PHENYTOIN [Suspect]
     Active Substance: PHENYTOIN
     Indication: Seizure
     Dosage: UNK

REACTIONS (5)
  - Seizure [Recovered/Resolved]
  - Toxicity to various agents [Recovered/Resolved]
  - Dehydration [None]
  - Hypoalbuminaemia [None]
  - Off label use [None]
